FAERS Safety Report 20312972 (Version 1)
Quarter: 2022Q1

REPORT INFORMATION
  Report Type: Spontaneous
  Country: DE (occurrence: DE)
  Receive Date: 20220108
  Receipt Date: 20220108
  Transmission Date: 20220423
  Serious: Yes (Hospitalization, Other)
  Sender: FDA-Public Use
  Company Number: DE-ADRED-07578-01

PATIENT
  Age: 69 Year
  Sex: Male
  Weight: 88 kg

DRUGS (6)
  1. CELECOXIB [Suspect]
     Active Substance: CELECOXIB
     Indication: Product used for unknown indication
     Dosage: 200 MILLIGRAM, ONCE A DAY
     Route: 048
  2. HERBALS [Concomitant]
     Active Substance: HERBALS
     Indication: Product used for unknown indication
     Dosage: UNK (BEDARF, TROPFEN)
     Route: 048
  3. LEVOCARNITIN [Concomitant]
     Indication: Product used for unknown indication
     Dosage: UNK (500 MG, 1-0-0-0, KAPSELN)
     Route: 048
  4. HYDROCHLOROTHIAZIDE\RAMIPRIL [Concomitant]
     Active Substance: HYDROCHLOROTHIAZIDE\RAMIPRIL
     Indication: Product used for unknown indication
     Dosage: UNK(25|5 MG, 1-0-0-0, TABLETTEN )
     Route: 048
  5. DIETARY SUPPLEMENT\HERBALS\MILK THISTLE [Concomitant]
     Active Substance: DIETARY SUPPLEMENT\HERBALS\MILK THISTLE
     Indication: Product used for unknown indication
     Dosage: 167 MILLIGRAM, ONCE A DAY
     Route: 048
  6. VALPROIC ACID [Concomitant]
     Active Substance: VALPROIC ACID
     Indication: Product used for unknown indication
     Dosage: 300 MILLIGRAM, ONCE A DAY(RETARD-TABLETTEN )
     Route: 048

REACTIONS (7)
  - Depressed level of consciousness [Unknown]
  - Memory impairment [Unknown]
  - Pyrexia [Unknown]
  - Musculoskeletal pain [Unknown]
  - Decreased appetite [Unknown]
  - Disturbance in attention [Unknown]
  - Aphasia [Unknown]
